FAERS Safety Report 13348329 (Version 1)
Quarter: 2017Q1

REPORT INFORMATION
  Report Type: Report from Study
  Country: None (occurrence: US)
  Receive Date: 20170319
  Receipt Date: 20170319
  Transmission Date: 20170428
  Serious: Yes (Other)
  Sender: FDA-Public Use
  Company Number: US-ABBVIE-17K-163-1908142-00

PATIENT
  Sex: Female
  Weight: 79.45 kg

DRUGS (3)
  1. MINOCYCLINE [Concomitant]
     Active Substance: MINOCYCLINE\MINOCYCLINE HYDROCHLORIDE
     Indication: ROSACEA
  2. FLUOCINONIDE. [Concomitant]
     Active Substance: FLUOCINONIDE
     Indication: PRODUCT USED FOR UNKNOWN INDICATION
  3. HUMIRA [Suspect]
     Active Substance: ADALIMUMAB
     Indication: PSORIASIS
     Route: 058
     Dates: start: 201601

REACTIONS (8)
  - Blood pressure diastolic decreased [Not Recovered/Not Resolved]
  - Retinal tear [Not Recovered/Not Resolved]
  - Lymphoedema [Recovering/Resolving]
  - Psoriasis [Not Recovered/Not Resolved]
  - Fall [Recovered/Resolved]
  - Medical device pain [Unknown]
  - Contusion [Recovering/Resolving]
  - Eye contusion [Recovered/Resolved]

NARRATIVE: CASE EVENT DATE: 2016
